FAERS Safety Report 4878251-1 (Version None)
Quarter: 2006Q1

REPORT INFORMATION
  Report Type: 
  Country: None (occurrence: None)
  Receive Date: 20060111
  Receipt Date: 20051220
  Transmission Date: 20060701
  Serious: Yes (Hospitalization, Other)
  Sender: FDA-Public Use
  Company Number: US-MERCK-0512USA03298

PATIENT
  Age: 60 Year
  Sex: Male
  Weight: 95 kg

DRUGS (13)
  1. VIOXX [Suspect]
     Indication: PAIN
     Route: 048
     Dates: start: 20010101, end: 20030101
  2. LASIX [Concomitant]
     Route: 065
  3. VIAGRA [Concomitant]
     Route: 065
  4. TOPROL-XL [Concomitant]
     Route: 065
  5. AVALIDE [Concomitant]
     Route: 065
  6. CLONIDINE [Concomitant]
     Route: 065
  7. HYDROCHLORIC ACID [Concomitant]
     Route: 065
  8. ZOLOFT [Concomitant]
     Route: 065
  9. ALLOPURINOL [Concomitant]
     Route: 065
  10. ZOCOR [Concomitant]
     Route: 048
  11. POTASSIUM (UNSPECIFIED) [Concomitant]
     Route: 065
  12. ASPIRIN [Concomitant]
     Route: 065
  13. LOTREL [Concomitant]
     Route: 065

REACTIONS (15)
  - AORTIC VALVE INCOMPETENCE [None]
  - ARTERIOSCLEROSIS CORONARY ARTERY [None]
  - ARTHRALGIA [None]
  - CEREBROVASCULAR ACCIDENT [None]
  - DIABETES MELLITUS [None]
  - DIZZINESS [None]
  - DYSPEPSIA [None]
  - DYSPNOEA [None]
  - EMOTIONAL DISTRESS [None]
  - HEART RATE DECREASED [None]
  - HYPERTENSION [None]
  - MITRAL VALVE INCOMPETENCE [None]
  - MYOCARDIAL INFARCTION [None]
  - SICK SINUS SYNDROME [None]
  - SINUS BRADYCARDIA [None]
